FAERS Safety Report 10011053 (Version 1)
Quarter: 2014Q1

REPORT INFORMATION
  Report Type: Spontaneous
  Country: US (occurrence: US)
  Receive Date: 20140314
  Receipt Date: 20140314
  Transmission Date: 20141002
  Serious: Yes (Hospitalization, Other)
  Sender: FDA-Public Use
  Company Number: US-BAYER-2014-037645

PATIENT
  Age: 21 Year
  Sex: Female
  Weight: 57.6 kg

DRUGS (4)
  1. YAZ [Suspect]
     Dosage: UNK
     Route: 048
  2. YASMIN [Suspect]
     Dosage: UNK
     Route: 048
     Dates: start: 200511
  3. AZITHROMYCIN [Concomitant]
     Dosage: 250 MG, UNK
  4. PREDNISONE [Concomitant]
     Dosage: 20 MG, UNK

REACTIONS (2)
  - Pulmonary embolism [None]
  - Deep vein thrombosis [None]
